FAERS Safety Report 9572615 (Version 2)
Quarter: 2013Q4

REPORT INFORMATION
  Report Type: Spontaneous
  Country: US (occurrence: US)
  Receive Date: 20131001
  Receipt Date: 20131114
  Transmission Date: 20140711
  Serious: Yes (Hospitalization, Other)
  Sender: FDA-Public Use
  Company Number: US-GILEAD-2013-0084409

PATIENT
  Sex: Male

DRUGS (2)
  1. LETAIRIS [Suspect]
     Indication: PULMONARY ARTERIAL HYPERTENSION
     Route: 048
     Dates: start: 20120726
  2. OXYGEN [Concomitant]
     Dosage: UNK, PRN
     Route: 055

REACTIONS (2)
  - Pulmonary oedema [Unknown]
  - Chronic obstructive pulmonary disease [Unknown]
